FAERS Safety Report 15547191 (Version 1)
Quarter: 2018Q4

REPORT INFORMATION
  Report Type: Spontaneous
  Country: GB (occurrence: GB)
  Receive Date: 20181024
  Receipt Date: 20181024
  Transmission Date: 20190205
  Serious: Yes (Hospitalization, Other)
  Sender: FDA-Public Use
  Company Number: GB-TEVA-2018-GB-968228

PATIENT
  Age: 6 Week
  Sex: Male

DRUGS (1)
  1. FOLIC ACID. [Suspect]
     Active Substance: FOLIC ACID
     Route: 065

REACTIONS (3)
  - Dyspnoea [Unknown]
  - Cardiac failure [Unknown]
  - Product dispensing error [Unknown]
